FAERS Safety Report 24982237 (Version 1)
Quarter: 2025Q1

REPORT INFORMATION
  Report Type: Spontaneous
  Country: US (occurrence: None)
  Receive Date: 20250216
  Receipt Date: 20250216
  Transmission Date: 20250408
  Serious: Yes (Other)
  Sender: FDA-CTU
  Company Number: None

PATIENT
  Age: 59 Year
  Sex: Male
  Weight: 142.65 kg

DRUGS (9)
  1. OZEMPIC [Suspect]
     Active Substance: SEMAGLUTIDE
     Indication: Type 2 diabetes mellitus
     Route: 058
     Dates: start: 20241106, end: 20250129
  2. AMLODIPINE [Concomitant]
     Active Substance: AMLODIPINE BESYLATE
     Dates: start: 20240513
  3. VITAMIN D3 [Concomitant]
     Active Substance: CHOLECALCIFEROL
  4. JARDIANCE [Concomitant]
     Active Substance: EMPAGLIFLOZIN
     Dates: start: 20250129
  5. Toujeo (insuline glargine) [Concomitant]
     Dates: start: 20240224
  6. Prinzide 20mg -12.5mg tablet [Concomitant]
     Dates: start: 20240223
  7. Metformin XR 1000mg tablet [Concomitant]
     Dates: start: 20240223
  8. Omeprazole 20 mg DR capsule [Concomitant]
     Dates: start: 20240223
  9. Rosuvastatin 40mg tablet [Concomitant]
     Dates: start: 20240223

REACTIONS (2)
  - Rash pruritic [None]
  - Rash [None]

NARRATIVE: CASE EVENT DATE: 20250129
